FAERS Safety Report 17010948 (Version 1)
Quarter: 2019Q4

REPORT INFORMATION
  Report Type: Spontaneous
  Country: US (occurrence: US)
  Receive Date: 20191001
  Receipt Date: 20191001
  Transmission Date: 20200122
  Serious: Yes (Hospitalization)
  Sender: FDA-Public Use
  Company Number: None

PATIENT
  Age: 72 Year
  Sex: Female

DRUGS (14)
  1. WARFARIN [Concomitant]
     Active Substance: WARFARIN
  2. SPIRONOLACTONE. [Concomitant]
     Active Substance: SPIRONOLACTONE
  3. LEVOTHYROXINE. [Concomitant]
     Active Substance: LEVOTHYROXINE
  4. SENNA [Concomitant]
     Active Substance: SENNA LEAF\SENNOSIDES\SENNOSIDES A AND B
  5. TYLENOL [Concomitant]
     Active Substance: ACETAMINOPHEN
  6. VOLTAREN TOP GEL [Concomitant]
  7. MVI [Concomitant]
     Active Substance: VITAMINS
  8. BISACODYL. [Concomitant]
     Active Substance: BISACODYL
  9. LACTULOSE. [Concomitant]
     Active Substance: LACTULOSE
  10. SERTRALINE [Concomitant]
     Active Substance: SERTRALINE HYDROCHLORIDE
  11. ADEMPAS [Suspect]
     Active Substance: RIOCIGUAT
     Indication: PULMONARY EMBOLISM
     Route: 048
     Dates: start: 201701
  12. FERROUS SULFATE. [Concomitant]
     Active Substance: FERROUS SULFATE
  13. COLACE [Concomitant]
     Active Substance: DOCUSATE SODIUM
  14. ASCORBIC ACID. [Concomitant]
     Active Substance: ASCORBIC ACID

REACTIONS (3)
  - Syncope [None]
  - Acute kidney injury [None]
  - Leukocytosis [None]

NARRATIVE: CASE EVENT DATE: 20190921
